FAERS Safety Report 6428863-9 (Version None)
Quarter: 2009Q4

REPORT INFORMATION
  Report Type: 
  Country: None (occurrence: None)
  Receive Date: 20091104
  Receipt Date: 20091104
  Transmission Date: 20100525
  Serious: Yes (Other)
  Sender: FDA-Public Use
  Company Number: None

PATIENT
  Age: 48 Year
  Sex: Female
  Weight: 58.9676 kg

DRUGS (1)
  1. AMBIEN CR [Suspect]
     Indication: INSOMNIA
     Dosage: 12.5 MG, 1 TABLET DAILY, PO
     Route: 048
     Dates: start: 20090701, end: 20090901

REACTIONS (4)
  - AGITATION [None]
  - DEPRESSION [None]
  - HOSTILITY [None]
  - PRESYNCOPE [None]
